FAERS Safety Report 7287427-8 (Version None)
Quarter: 2011Q1

REPORT INFORMATION
  Report Type: 
  Country: None (occurrence: None)
  Receive Date: 20110211
  Receipt Date: 20110125
  Transmission Date: 20110831
  Serious: Yes (Death)
  Sender: FDA-Public Use
  Company Number: US-TYCO HEALTHCARE/MALLINCKRODT-T201100176

PATIENT
  Age: 22 Year
  Sex: Male

DRUGS (3)
  1. ACETAMINOPHEN [Suspect]
     Route: 048
  2. OXYCODONE HCL AND ACETAMINOPHEN [Suspect]
     Route: 048
  3. ETHANOL [Suspect]
     Route: 048

REACTIONS (1)
  - DEATH [None]
